FAERS Safety Report 8816666 (Version 3)
Quarter: 2013Q1

REPORT INFORMATION
  Report Type: Spontaneous
  Country: US (occurrence: None)
  Receive Date: 20120928
  Receipt Date: 20121019
  Transmission Date: 20140127
  Serious: Yes (Other)
  Sender: FDA-Public Use
  Company Number: 2012SGN00421

PATIENT
  Age: 34 Year
  Sex: Male

DRUGS (4)
  1. ADCETRIS (BRENTUXIMAB VEDOTIN) INJECTION [Suspect]
     Indication: HODGKIN^S DISEASE
     Dosage: Q21D
     Route: 042
     Dates: start: 20110916, end: 20120504
  2. NEURONTIN (GABAPENTIN) [Concomitant]
  3. XANAX (ALPRAZOLAM) [Concomitant]
  4. LORTAB (HYDROCODONE BITARTRATE, PARACETAMOL) [Concomitant]

REACTIONS (3)
  - Diffuse large B-cell lymphoma [None]
  - Renal mass [None]
  - Adrenal mass [None]
